FAERS Safety Report 11710304 (Version 1)
Quarter: 2015Q4

REPORT INFORMATION
  Report Type: Spontaneous
  Country: US (occurrence: US)
  Receive Date: 20151104
  Receipt Date: 20151104
  Transmission Date: 20160304
  Serious: No
  Sender: FDA-Public Use
  Company Number: US-ELI_LILLY_AND_COMPANY-US201104002894

PATIENT
  Sex: Male

DRUGS (1)
  1. FORTEO [Suspect]
     Active Substance: TERIPARATIDE
     Dosage: 20 UG, QD
     Route: 058
     Dates: start: 20090408

REACTIONS (6)
  - Balance disorder [Unknown]
  - Heart rate increased [Unknown]
  - Weight decreased [Unknown]
  - Bone pain [Unknown]
  - Myalgia [Unknown]
  - Headache [Unknown]
